FAERS Safety Report 17486509 (Version 2)
Quarter: 2020Q3

REPORT INFORMATION
  Report Type: Report from Study
  Country: US (occurrence: US)
  Receive Date: 20200303
  Receipt Date: 20200722
  Transmission Date: 20201102
  Serious: Yes (Other)
  Sender: FDA-Public Use
  Company Number: US-SA-2019SA328045

PATIENT

DRUGS (6)
  1. CLARITIN?D NOS [Concomitant]
     Active Substance: LORATADINE\PSEUDOEPHEDRINE SULFATE
     Indication: HYPERSENSITIVITY
     Dosage: 1 DF, QD
     Route: 048
  2. ALEMTUZUMAB [Suspect]
     Active Substance: ALEMTUZUMAB
     Dosage: 12 MG, QD
     Route: 041
     Dates: start: 20160613, end: 20160617
  3. ALEMTUZUMAB [Suspect]
     Active Substance: ALEMTUZUMAB
     Dosage: 12 MG, QD
     Route: 041
     Dates: start: 20170620, end: 20170622
  4. ALEMTUZUMAB [Suspect]
     Active Substance: ALEMTUZUMAB
     Indication: MULTIPLE SCLEROSIS
     Dosage: 12 MG, QD
     Route: 041
     Dates: start: 20191106, end: 20191108
  5. SALBUTAMOL [Concomitant]
     Active Substance: ALBUTEROL
     Indication: SEASONAL ALLERGY
     Dosage: UNK UNK, PRN
     Route: 065
  6. VITAMIN B12 [Concomitant]
     Active Substance: CYANOCOBALAMIN
     Dosage: UNK UNK, QM
     Route: 065
     Dates: start: 2016

REACTIONS (17)
  - Pain [Recovered/Resolved]
  - White blood cell count decreased [Not Recovered/Not Resolved]
  - Condition aggravated [Not Recovered/Not Resolved]
  - Visual impairment [Unknown]
  - Abdominal discomfort [Recovered/Resolved]
  - Anaemia [Unknown]
  - Haemoglobin decreased [Unknown]
  - Infection [Recovered/Resolved]
  - Viral infection [Not Recovered/Not Resolved]
  - Aphasia [Unknown]
  - Oropharyngeal pain [Not Recovered/Not Resolved]
  - Chondritis [Not Recovered/Not Resolved]
  - Herpes ophthalmic [Unknown]
  - Decreased appetite [Recovered/Resolved]
  - Eye disorder [Not Recovered/Not Resolved]
  - Palpitations [Not Recovered/Not Resolved]
  - Rhinorrhoea [Not Recovered/Not Resolved]

NARRATIVE: CASE EVENT DATE: 2019
